FAERS Safety Report 13381374 (Version 1)
Quarter: 2017Q1

REPORT INFORMATION
  Report Type: Spontaneous
  Country: US (occurrence: US)
  Receive Date: 20170328
  Receipt Date: 20170328
  Transmission Date: 20170429
  Serious: No
  Sender: FDA-Public Use
  Company Number: None

PATIENT
  Age: 53 Year
  Sex: Male

DRUGS (1)
  1. AMPYRA [Suspect]
     Active Substance: DALFAMPRIDINE
     Indication: MULTIPLE SCLEROSIS
     Route: 048
     Dates: start: 20131231

REACTIONS (5)
  - Haemoglobin increased [None]
  - Laboratory test abnormal [None]
  - Red blood cell count increased [None]
  - Haematocrit increased [None]
  - Mean cell volume abnormal [None]

NARRATIVE: CASE EVENT DATE: 20170327
